FAERS Safety Report 22210545 (Version 1)
Quarter: 2023Q2

REPORT INFORMATION
  Report Type: Spontaneous
  Country: JP (occurrence: JP)
  Receive Date: 20230414
  Receipt Date: 20230414
  Transmission Date: 20230721
  Serious: Yes (Other)
  Sender: FDA-Public Use
  Company Number: JP-BAXTER-2023BAX018087

PATIENT

DRUGS (5)
  1. CYCLOPHOSPHAMIDE [Suspect]
     Active Substance: CYCLOPHOSPHAMIDE
     Indication: Diffuse large B-cell lymphoma
     Dosage: R-THP-COP THERAPY
     Route: 065
  2. PREDNISOLONE [Concomitant]
     Active Substance: PREDNISOLONE
     Indication: Diffuse large B-cell lymphoma
     Dosage: R-THP-COP THERAPY
     Route: 065
  3. RITUXIMAB [Concomitant]
     Active Substance: RITUXIMAB
     Indication: Diffuse large B-cell lymphoma
     Dosage: R-THP-COP THERAPY
     Route: 065
  4. VINCRISTINE SULFATE [Concomitant]
     Active Substance: VINCRISTINE SULFATE
     Indication: Diffuse large B-cell lymphoma
     Dosage: R-THP-COP THERAPY
     Route: 065
  5. PIRARUBICIN HYDROCHLORIDE [Concomitant]
     Active Substance: PIRARUBICIN HYDROCHLORIDE
     Indication: Diffuse large B-cell lymphoma
     Dosage: R-THP-COP THERAPY
     Route: 065

REACTIONS (1)
  - Hepatobiliary disease [Unknown]
